FAERS Safety Report 7339658-6 (Version None)
Quarter: 2011Q1

REPORT INFORMATION
  Report Type: 
  Country: None (occurrence: None)
  Receive Date: 20110308
  Receipt Date: 20110301
  Transmission Date: 20110831
  Serious: Yes (Other)
  Sender: FDA-Public Use
  Company Number: FR-BRISTOL-MYERS SQUIBB COMPANY-15589492

PATIENT
  Age: 61 Year
  Sex: Female

DRUGS (1)
  1. ONGLYZA [Suspect]
     Indication: TYPE 2 DIABETES MELLITUS
     Dosage: DISCONTINUED ON 23NOV10 RESTARTED ON 10DEC10
     Route: 048
     Dates: start: 20101029, end: 20101216

REACTIONS (1)
  - DYSPNOEA [None]
